FAERS Safety Report 9540050 (Version 2)
Quarter: 2013Q3

REPORT INFORMATION
  Report Type: Spontaneous
  Country: US (occurrence: US)
  Receive Date: 20130920
  Receipt Date: 20130926
  Transmission Date: 20140515
  Serious: Yes (Death, Hospitalization)
  Sender: FDA-Public Use
  Company Number: US-B.I. PHARMACEUTICALS,INC./RIDGEFIELD-2013-BI-29283BP

PATIENT
  Age: 74 Year
  Sex: Male

DRUGS (10)
  1. PRADAXA [Suspect]
     Indication: ATRIAL FIBRILLATION
     Dosage: 300 MG
     Route: 048
     Dates: start: 201206
  2. ALLEGRA [Concomitant]
     Indication: SEASONAL ALLERGY
     Dosage: 180 MG
     Route: 048
  3. SOTALOL [Concomitant]
     Indication: ARRHYTHMIA
     Dosage: 80 MG
     Route: 048
  4. DIOVAN HCTZ [Concomitant]
     Indication: HYPERTENSION
     Dosage: STRENGTH: 80/12.5; DAILY DOSE: 80/12.5
     Route: 048
  5. NEXIUM [Concomitant]
     Indication: GASTROOESOPHAGEAL REFLUX DISEASE
     Dosage: 40 MG
     Route: 048
  6. CRESTOR [Concomitant]
     Indication: HYPERCHOLESTEROLAEMIA
  7. EXELON [Concomitant]
     Indication: DEMENTIA ALZHEIMER^S TYPE
  8. EFFEXOR [Concomitant]
     Indication: DEPRESSION
     Dosage: 75 MG
     Route: 048
  9. METFORMIN [Concomitant]
     Indication: DIABETES MELLITUS
     Dosage: 500 MG
     Route: 048
  10. MIRTAZAPINE [Concomitant]
     Indication: SLEEP DISORDER
     Dosage: 45 MG
     Route: 048

REACTIONS (1)
  - Haemorrhage intracranial [Fatal]
